FAERS Safety Report 17980886 (Version 3)
Quarter: 2020Q3

REPORT INFORMATION
  Report Type: Report from Study
  Country: None (occurrence: HU)
  Receive Date: 20200704
  Receipt Date: 20200715
  Transmission Date: 20201103
  Serious: Yes (Hospitalization, Other)
  Sender: FDA-Public Use
  Company Number: HU-ABBVIE-20K-076-3469876-00

PATIENT
  Age: 71 Year
  Sex: Male

DRUGS (5)
  1. TANYDON [Concomitant]
     Indication: HYPERTENSION
     Dosage: IN THE MORNING
  2. ESOMEPRAZOLE. [Concomitant]
     Active Substance: ESOMEPRAZOLE MAGNESIUM
     Indication: PROPHYLAXIS
     Route: 048
  3. FRONTIN [Concomitant]
     Active Substance: ALPRAZOLAM
     Indication: PRODUCT USED FOR UNKNOWN INDICATION
     Dosage: AT THE EVENING
     Route: 048
  4. DUODOPA [Suspect]
     Active Substance: CARBIDOPA\LEVODOPA
     Indication: PARKINSON^S DISEASE
     Dosage: MORNING DOSE: 8.5 ML; CONTINUOUS DOSE: 4.0 ML/HOUR; EXTRA DOSE 1.0 ML
     Route: 050
     Dates: start: 20170621
  5. POLITRATE DEPOT [Concomitant]
     Indication: NEOPLASM PROSTATE
     Dosage: 22.5 MG /1 AMPOULE
     Route: 042

REACTIONS (6)
  - Confusional state [Not Recovered/Not Resolved]
  - Amnesia [Not Recovered/Not Resolved]
  - Cerebral vascular occlusion [Unknown]
  - Immobile [Not Recovered/Not Resolved]
  - Cerebral infarction [Recovered/Resolved with Sequelae]
  - Hyperkinesia [Not Recovered/Not Resolved]

NARRATIVE: CASE EVENT DATE: 20200629
